FAERS Safety Report 13684859 (Version 7)
Quarter: 2017Q4

REPORT INFORMATION
  Report Type: Report from Study
  Country: US (occurrence: US)
  Receive Date: 20170623
  Receipt Date: 20171017
  Transmission Date: 20180320
  Serious: Yes (Hospitalization)
  Sender: FDA-Public Use
  Company Number: US-BAYER-2017-028848

PATIENT
  Age: 45 Year
  Sex: Female

DRUGS (9)
  1. ADEMPAS [Suspect]
     Active Substance: RIOCIGUAT
     Indication: PULMONARY ARTERIAL HYPERTENSION
     Dosage: UNK
  2. ADEMPAS [Suspect]
     Active Substance: RIOCIGUAT
     Indication: PULMONARY ARTERIAL HYPERTENSION
     Dosage: 0.5 MG, TID
     Route: 048
     Dates: start: 20170609, end: 20170622
  3. ADEMPAS [Suspect]
     Active Substance: RIOCIGUAT
     Indication: PULMONARY ARTERIAL HYPERTENSION
     Dosage: 2.5 MG, TID
     Route: 048
     Dates: start: 20150218
  4. ADEMPAS [Suspect]
     Active Substance: RIOCIGUAT
     Indication: PULMONARY ARTERIAL HYPERTENSION
     Dosage: 2.5 MG, TID
     Route: 048
     Dates: start: 20170612
  5. ADEMPAS [Suspect]
     Active Substance: RIOCIGUAT
     Indication: PULMONARY ARTERIAL HYPERTENSION
     Dosage: 2.0 MG, TID
     Route: 048
  6. ADEMPAS [Suspect]
     Active Substance: RIOCIGUAT
     Indication: PULMONARY ARTERIAL HYPERTENSION
     Dosage: 1 MG, TID
     Route: 048
  7. ADEMPAS [Suspect]
     Active Substance: RIOCIGUAT
     Indication: PULMONARY ARTERIAL HYPERTENSION
     Dosage: 1 MG, TID
     Route: 048
     Dates: start: 20170712
  8. ADEMPAS [Suspect]
     Active Substance: RIOCIGUAT
     Indication: PULMONARY ARTERIAL HYPERTENSION
     Dosage: 0.5 MG, TID
     Route: 048
     Dates: start: 20170627
  9. REMODULIN [Concomitant]
     Active Substance: TREPROSTINIL
     Dosage: 35 NKM

REACTIONS (22)
  - Chest pain [None]
  - Central venous catheter removal [None]
  - Pulmonary hypertension [None]
  - Fatigue [Not Recovered/Not Resolved]
  - Palpitations [None]
  - Injection site irritation [None]
  - Vomiting [None]
  - Fluid retention [None]
  - Chest pain [None]
  - Nausea [None]
  - Therapy cessation [Recovered/Resolved]
  - Staphylococcus test positive [None]
  - Enterococcus test positive [None]
  - Dyspnoea [None]
  - Fatigue [None]
  - Dyspnoea [Not Recovered/Not Resolved]
  - Weight increased [None]
  - Pyrexia [None]
  - Palpitations [Not Recovered/Not Resolved]
  - Headache [Unknown]
  - Hospitalisation [None]
  - Cough [Not Recovered/Not Resolved]

NARRATIVE: CASE EVENT DATE: 20170209
